FAERS Safety Report 15901306 (Version 1)
Quarter: 2019Q1

REPORT INFORMATION
  Report Type: Spontaneous
  Country: CN (occurrence: CN)
  Receive Date: 20190201
  Receipt Date: 20190201
  Transmission Date: 20190417
  Serious: Yes (Other)
  Sender: FDA-Public Use
  Company Number: CN-PFIZER INC-2019038861

PATIENT
  Age: 31 Year
  Sex: Female
  Weight: 50 kg

DRUGS (6)
  1. DOCUSATE SODIUM. [Suspect]
     Active Substance: DOCUSATE SODIUM
     Indication: CONSTIPATION
     Dosage: 0.1 G, 3X/DAY
     Route: 048
     Dates: start: 20181218, end: 20181220
  2. SHENMAI INJECTION [Suspect]
     Active Substance: HERBALS
     Indication: FATIGUE
     Dosage: 50 ML, 1X/DAY
     Route: 041
     Dates: start: 20181212, end: 20181220
  3. KAI SHI [Suspect]
     Active Substance: ALPROSTADIL
     Indication: CARDIOVASCULAR DISORDER
     Dosage: 10 UG, 2X/DAY
     Route: 041
     Dates: start: 20181213, end: 20181220
  4. ACETYLCYSTEINE. [Suspect]
     Active Substance: ACETYLCYSTEINE
     Indication: SPUTUM ABNORMAL
     Dosage: 0.6 G, 2X/DAY
     Route: 048
     Dates: start: 20181212, end: 20181220
  5. FEN LE [HYDROXYCHLOROQUINE SULFATE] [Suspect]
     Active Substance: HYDROXYCHLOROQUINE SULFATE
     Indication: ARTHRALGIA
     Dosage: 0.1 G, 2X/DAY
     Route: 048
     Dates: start: 20181212, end: 20181220
  6. METHYLPREDNISOLONE. [Suspect]
     Active Substance: METHYLPREDNISOLONE
     Indication: IMMUNOSUPPRESSION
     Dosage: 20 MG, 1X/DAY
     Route: 048
     Dates: start: 20181215, end: 20181220

REACTIONS (4)
  - Rash [Recovering/Resolving]
  - Hypersensitivity [Recovering/Resolving]
  - Pyrexia [Recovering/Resolving]
  - Pruritus [Recovering/Resolving]

NARRATIVE: CASE EVENT DATE: 20181220
